FAERS Safety Report 17248542 (Version 2)
Quarter: 2020Q1

REPORT INFORMATION
  Report Type: Spontaneous
  Country: FR (occurrence: FR)
  Receive Date: 20200108
  Receipt Date: 20200203
  Transmission Date: 20200409
  Serious: Yes (Hospitalization)
  Sender: FDA-Public Use
  Company Number: FR-MYLANLABS-2020M1001688

PATIENT
  Age: 83 Year
  Sex: Male

DRUGS (1)
  1. ATORVASTATIN [Suspect]
     Active Substance: ATORVASTATIN
     Indication: HYPERCHOLESTEROLAEMIA
     Dosage: INCONNUE
     Route: 048
     Dates: end: 20190601

REACTIONS (1)
  - Pleuropericarditis [Recovered/Resolved]

NARRATIVE: CASE EVENT DATE: 201904
